FAERS Safety Report 12235293 (Version 1)
Quarter: 2016Q2

REPORT INFORMATION
  Report Type: Report from Study
  Country: CA (occurrence: CA)
  Receive Date: 20160404
  Receipt Date: 20160404
  Transmission Date: 20160815
  Serious: Yes (Congenital Anomaly)
  Sender: FDA-Public Use
  Company Number: CA-AMGEN-CANSL2016040604

PATIENT
  Age: 61 Year
  Sex: Female
  Weight: 52.61 kg

DRUGS (1)
  1. PROLIA [Suspect]
     Active Substance: DENOSUMAB
     Indication: OSTEOPOROSIS
     Dosage: 60 MG/ML, (APPROX 10% OR 6 MG- 0.1 ML)
     Route: 065
     Dates: start: 20151010

REACTIONS (3)
  - Fatigue [Unknown]
  - Injection site erythema [Recovered/Resolved with Sequelae]
  - Malaise [Unknown]

NARRATIVE: CASE EVENT DATE: 20151012
